FAERS Safety Report 8519942 (Version 2)
Quarter: 2012Q4

REPORT INFORMATION
  Report Type: 
  Country: US (occurrence: US)
  Receive Date: 20120418
  Receipt Date: 20121120
  Transmission Date: 20130627
  Serious: No
  Sender: FDA-Public Use
  Company Number: US-ASTRAZENECA-2011SE54271

PATIENT
  Age: 58 Year
  Sex: Female

DRUGS (1)
  1. NEXIUM [Suspect]
     Route: 048

REACTIONS (6)
  - Visual impairment [Unknown]
  - Chest pain [Unknown]
  - Dyspepsia [Unknown]
  - Retching [Unknown]
  - Flatulence [Unknown]
  - Abdominal discomfort [Unknown]
